FAERS Safety Report 5534386-1 (Version None)
Quarter: 2007Q4

REPORT INFORMATION
  Report Type: 
  Country: None (occurrence: None)
  Receive Date: 20071205
  Receipt Date: 20071127
  Transmission Date: 20080405
  Serious: No
  Sender: FDA-Public Use
  Company Number: GB-AVENTIS-200719135GDDC

PATIENT

DRUGS (3)
  1. INSULIN GLARGINE [Suspect]
     Route: 058
  2. GLIMEPIRIDE [Concomitant]
  3. METFORMIN HCL [Concomitant]

REACTIONS (1)
  - ASTHMA [None]
